FAERS Safety Report 6429602-8 (Version None)
Quarter: 2009Q4

REPORT INFORMATION
  Report Type: 
  Country: None (occurrence: None)
  Receive Date: 20091103
  Receipt Date: 20091027
  Transmission Date: 20100525
  Serious: Yes (Hospitalization)
  Sender: FDA-Public Use
  Company Number: 20090491

PATIENT
  Age: 5 Year
  Sex: Male

DRUGS (1)
  1. EPINEPHRINE [Suspect]
     Indication: MEDICATION ERROR
     Dosage: 30 ML 1 ; 1000 INJECTION NOS

REACTIONS (4)
  - HYPERTENSION [None]
  - PULMONARY OEDEMA [None]
  - VENTRICULAR TACHYCARDIA [None]
  - WRONG DRUG ADMINISTERED [None]
